FAERS Safety Report 5903804-9 (Version None)
Quarter: 2008Q3

REPORT INFORMATION
  Report Type: 
  Country: None (occurrence: None)
  Receive Date: 20080930
  Receipt Date: 20080924
  Transmission Date: 20090109
  Serious: Yes (Other)
  Sender: FDA-Public Use
  Company Number: DE-GENENTECH-268599

PATIENT
  Sex: Female

DRUGS (2)
  1. TRASTUZUMAB [Suspect]
     Indication: METASTASES TO LUNG
     Dosage: UNK
     Route: 064
  2. CORTICOSTEROIDS (UNK INGREDIENTS) [Concomitant]
     Indication: RESPIRATORY DISORDER

REACTIONS (3)
  - DRUG EXPOSURE DURING PREGNANCY [None]
  - PREMATURE BABY [None]
  - RESPIRATORY FAILURE [None]
